FAERS Safety Report 7331088-6 (Version None)
Quarter: 2011Q1

REPORT INFORMATION
  Report Type: 
  Country: None (occurrence: None)
  Receive Date: 20110304
  Receipt Date: 20110222
  Transmission Date: 20110831
  Serious: Yes (Hospitalization, Other)
  Sender: FDA-Public Use
  Company Number: SE-JNJFOC-20110206356

PATIENT
  Sex: Female

DRUGS (1)
  1. CILEST [Suspect]
     Indication: CONTRACEPTION
     Route: 065

REACTIONS (4)
  - OEDEMA PERIPHERAL [None]
  - PERIPHERAL COLDNESS [None]
  - WEIGHT INCREASED [None]
  - LIVEDO RETICULARIS [None]
